FAERS Safety Report 15839410 (Version 1)
Quarter: 2019Q1

REPORT INFORMATION
  Report Type: Spontaneous
  Country: US (occurrence: US)
  Receive Date: 20190117
  Receipt Date: 20190117
  Transmission Date: 20190417
  Serious: No
  Sender: FDA-Public Use
  Company Number: US-RECRO GAINESVILLE LLC-REPH-2018-000082

PATIENT
  Sex: Female

DRUGS (4)
  1. ALPRAZOLAM. [Concomitant]
     Active Substance: ALPRAZOLAM
     Dosage: UNK
  2. VERELAN PM [Suspect]
     Active Substance: VERAPAMIL HYDROCHLORIDE
     Indication: HYPERTENSION
     Dosage: 100 MG (3 CAPSULES), QD (AT NIGHT)
     Route: 048
     Dates: start: 201809
  3. EYE DROPS                          /00256502/ [Concomitant]
     Active Substance: OXYMETAZOLINE
     Indication: GLAUCOMA
     Dosage: UNK
     Route: 047
  4. VERAPAMIL HYDROCHLORIDE EXTENDED RELEASE [Suspect]
     Active Substance: VERAPAMIL HYDROCHLORIDE
     Indication: HYPERTENSION
     Dosage: 300 MG, QD (AT NIGHT)
     Route: 048
     Dates: start: 2005, end: 201809

REACTIONS (2)
  - Disorientation [Not Recovered/Not Resolved]
  - Palpitations [Not Recovered/Not Resolved]
